FAERS Safety Report 25007556 (Version 1)
Quarter: 2025Q1

REPORT INFORMATION
  Report Type: Report from Study
  Country: CA (occurrence: CA)
  Receive Date: 20250225
  Receipt Date: 20250225
  Transmission Date: 20250409
  Serious: Yes (Other)
  Sender: TAKEDA
  Company Number: CA-TAKEDA-2025TUS018522

PATIENT
  Sex: Female
  Weight: 65.77 kg

DRUGS (8)
  1. VEDOLIZUMAB [Suspect]
     Active Substance: VEDOLIZUMAB
     Indication: Colitis ulcerative
  2. PENTASA [Concomitant]
     Active Substance: MESALAMINE
     Indication: Colitis ulcerative
     Dosage: UNK UNK, QD
     Dates: start: 20240726
  3. PENTASA [Concomitant]
     Active Substance: MESALAMINE
     Dosage: 4 GRAM, QD
  4. PREDNISONE [Concomitant]
     Active Substance: PREDNISONE
     Indication: Colitis ulcerative
     Dosage: UNK UNK, QD
     Dates: start: 20241108
  5. PREDNISONE [Concomitant]
     Active Substance: PREDNISONE
     Dosage: 8 DOSAGE FORM, QD (UNTIL FEB-2020)
  6. PREDNISONE [Concomitant]
     Active Substance: PREDNISONE
     Dosage: 50 MILLIGRAM, 1/WEEK (UNTIL FINISHED)
  7. PREDNISONE [Concomitant]
     Active Substance: PREDNISONE
     Dosage: 40 MILLIGRAM, QD (F2W)
  8. PREDNISONE [Concomitant]
     Active Substance: PREDNISONE

REACTIONS (4)
  - Haematochezia [Unknown]
  - Impaired work ability [Unknown]
  - Frequent bowel movements [Unknown]
  - Social problem [Unknown]
